FAERS Safety Report 22065600 (Version 1)
Quarter: 2023Q1

REPORT INFORMATION
  Report Type: Spontaneous
  Country: SE (occurrence: SE)
  Receive Date: 20230306
  Receipt Date: 20230306
  Transmission Date: 20230418
  Serious: Yes (Other)
  Sender: FDA-Public Use
  Company Number: None

PATIENT
  Age: 44 Year
  Sex: Female
  Weight: 62 kg

DRUGS (4)
  1. LISDEXAMFETAMINE DIMESYLATE [Suspect]
     Active Substance: LISDEXAMFETAMINE DIMESYLATE
     Indication: Attention deficit hyperactivity disorder
     Dosage: 1 DOSAGE FORM, QD
     Route: 048
     Dates: start: 20210330, end: 20211215
  2. Niferex [Concomitant]
     Dosage: 100 MILLIGRAM, QD
     Route: 048
     Dates: start: 20150810
  3. LEVOTHYROXINE SODIUM [Concomitant]
     Active Substance: LEVOTHYROXINE SODIUM
     Dosage: 75 MIKROGRAM 1 TABLETT EN G?NG PER DAG
     Route: 048
     Dates: start: 20181010
  4. MELATONIN [Concomitant]
     Active Substance: MELATONIN
     Dosage: 4 MILLIGRAM, QD
     Route: 048
     Dates: start: 20170727

REACTIONS (2)
  - Confusional state [Not Recovered/Not Resolved]
  - Memory impairment [Not Recovered/Not Resolved]

NARRATIVE: CASE EVENT DATE: 20210413
